FAERS Safety Report 5133290-0 (Version None)
Quarter: 2006Q4

REPORT INFORMATION
  Report Type: 
  Country: None (occurrence: None)
  Receive Date: 20060831
  Receipt Date: 20060525
  Transmission Date: 20070319
  Serious: No
  Sender: FDA-Public Use
  Company Number: 2006-BP-02602BP

PATIENT
  Age: 60 Year
  Sex: Female

DRUGS (11)
  1. SPIRIVA [Suspect]
     Indication: ASTHMA
     Dosage: 18 MCG (18 MCG),IH
     Dates: start: 20050901
  2. SPIRIVA [Suspect]
     Indication: EMPHYSEMA
     Dosage: 18 MCG (18 MCG),IH
     Dates: start: 20050901
  3. SPIRIVA [Suspect]
  4. VERAPAMIL [Concomitant]
  5. ADVAIR (SERETIDE /01420901/) [Concomitant]
  6. ZETIA [Concomitant]
  7. LISINOPRIL [Concomitant]
  8. THEOPHYLLINE [Concomitant]
  9. METFORMIN HCL [Concomitant]
  10. PRAVACHOL [Concomitant]
  11. ASPIRIN [Concomitant]

REACTIONS (2)
  - BRONCHITIS [None]
  - PNEUMONIA [None]
